FAERS Safety Report 5568884-1 (Version None)
Quarter: 2007Q4

REPORT INFORMATION
  Report Type: 
  Country: None (occurrence: None)
  Receive Date: 20071220
  Receipt Date: 20070227
  Transmission Date: 20080405
  Serious: No
  Sender: FDA-Public Use
  Company Number: A0641140A

PATIENT
  Age: 44 Year
  Sex: Male

DRUGS (1)
  1. AVODART [Suspect]
     Indication: BENIGN PROSTATIC HYPERPLASIA
     Dosage: .5MG PER DAY
     Route: 048
     Dates: start: 20070115, end: 20070227

REACTIONS (1)
  - DARK CIRCLES UNDER EYES [None]
